FAERS Safety Report 24052207 (Version 3)
Quarter: 2024Q3

REPORT INFORMATION
  Report Type: Report from Study
  Country: US (occurrence: US)
  Receive Date: 20240704
  Receipt Date: 20240822
  Transmission Date: 20241017
  Serious: No
  Sender: ALEXION PHARMACEUTICALS
  Company Number: US-AstraZeneca-CH-00655998A

PATIENT
  Age: 64 Year
  Sex: Male

DRUGS (1)
  1. ULTOMIRIS [Suspect]
     Active Substance: RAVULIZUMAB-CWVZ
     Indication: Neuromyelitis optica spectrum disorder
     Dosage: UNK
     Route: 065
     Dates: start: 20240621

REACTIONS (8)
  - Decreased appetite [Unknown]
  - Limb discomfort [Unknown]
  - Wheelchair user [Unknown]
  - Joint stiffness [Unknown]
  - Headache [Unknown]
  - Asthenia [Unknown]
  - Fatigue [Unknown]
  - Infection [Unknown]

NARRATIVE: CASE EVENT DATE: 20240623
